FAERS Safety Report 9964802 (Version 2)
Quarter: 2014Q1

REPORT INFORMATION
  Report Type: Spontaneous
  Country: US (occurrence: US)
  Receive Date: 20140305
  Receipt Date: 20140305
  Transmission Date: 20141002
  Serious: Yes (Disabling)
  Sender: FDA-Public Use
  Company Number: US-GE HEALTHCARE MEDICAL DIAGNOSTICS-OSCN-PR-1002S-0051

PATIENT
  Sex: Female

DRUGS (8)
  1. OMNISCAN [Suspect]
     Indication: CARCINOEMBRYONIC ANTIGEN INCREASED
     Route: 065
     Dates: start: 20020709, end: 20020709
  2. OMNISCAN [Suspect]
     Indication: RENAL ARTERY STENOSIS
     Route: 065
     Dates: start: 20021112, end: 20021112
  3. OMNISCAN [Suspect]
     Route: 065
     Dates: start: 20020724, end: 20020724
  4. OMNISCAN [Suspect]
     Route: 065
     Dates: start: 20021209, end: 20021209
  5. OMNISCAN [Suspect]
     Route: 065
     Dates: start: 20040124, end: 20040124
  6. OMNISCAN [Suspect]
     Route: 065
     Dates: start: 20040225, end: 20040225
  7. MAGNEVIST [Suspect]
     Indication: PRODUCT USED FOR UNKNOWN INDICATION
     Route: 065
     Dates: start: 20050225, end: 20050225
  8. MAGNEVIST [Suspect]
     Route: 065
     Dates: start: 20060622, end: 20060622

REACTIONS (1)
  - Nephrogenic systemic fibrosis [Not Recovered/Not Resolved]
